FAERS Safety Report 6448772-9 (Version None)
Quarter: 2009Q4

REPORT INFORMATION
  Report Type: 
  Country: None (occurrence: None)
  Receive Date: 20091120
  Receipt Date: 20091012
  Transmission Date: 20100525
  Serious: Yes (Hospitalization, Other)
  Sender: FDA-Public Use
  Company Number: PHEH2009US16047

PATIENT
  Sex: Female

DRUGS (1)
  1. EXJADE [Suspect]
     Indication: IRON METABOLISM DISORDER
     Dosage: 2000 MG DAILY
     Route: 048
     Dates: start: 20081001, end: 20090701

REACTIONS (2)
  - ARTHRITIS [None]
  - CYST REMOVAL [None]
